FAERS Safety Report 9636124 (Version 2)
Quarter: 2013Q4

REPORT INFORMATION
  Report Type: Spontaneous
  Country: AU (occurrence: AU)
  Receive Date: 20131021
  Receipt Date: 20131112
  Transmission Date: 20140711
  Serious: Yes (Life-Threatening, Other)
  Sender: FDA-Public Use
  Company Number: AU-AMGEN-AUSSP2013072770

PATIENT
  Age: 60 Year
  Sex: Female

DRUGS (4)
  1. XGEVA [Suspect]
     Indication: METASTASES TO BONE
     Dosage: 120 MG, Q4WK
     Route: 058
     Dates: start: 201203
  2. FULVESTRANT [Concomitant]
  3. CALCIUM                            /00060701/ [Concomitant]
     Indication: SUPPLEMENTATION THERAPY
  4. VITAMIN D                          /00107901/ [Concomitant]
     Indication: SUPPLEMENTATION THERAPY

REACTIONS (2)
  - Lung disorder [Not Recovered/Not Resolved]
  - Spinal disorder [Not Recovered/Not Resolved]
